FAERS Safety Report 18488879 (Version 2)
Quarter: 2020Q4

REPORT INFORMATION
  Report Type: Other
  Country: US (occurrence: US)
  Receive Date: 20201111
  Receipt Date: 20201221
  Transmission Date: 20210114
  Serious: Yes (Hospitalization, Disabling, Congenital Anomaly, Other)
  Sender: FDA-Public Use
  Company Number: US-ROCHE-2708563

PATIENT
  Age: 0 Day
  Sex: Male
  Weight: 5.96 kg

DRUGS (1)
  1. MYCOPHENOLATE MOFETIL. [Suspect]
     Active Substance: MYCOPHENOLATE MOFETIL
     Indication: PRODUCT USED FOR UNKNOWN INDICATION
     Route: 064

REACTIONS (11)
  - Porencephaly [Unknown]
  - Developmental delay [Unknown]
  - Fine motor delay [Unknown]
  - Necrotising colitis [Unknown]
  - Premature baby [Unknown]
  - Vascular device infection [Not Recovered/Not Resolved]
  - Bronchopulmonary dysplasia [Unknown]
  - Short-bowel syndrome [Unknown]
  - Speech disorder developmental [Unknown]
  - Neonatal respiratory distress syndrome [Unknown]
  - Foetal exposure during pregnancy [Unknown]

NARRATIVE: CASE EVENT DATE: 20200320
